FAERS Safety Report 5244153-4 (Version None)
Quarter: 2007Q1

REPORT INFORMATION
  Report Type: 
  Country: None (occurrence: None)
  Receive Date: 20070216
  Receipt Date: 20070130
  Transmission Date: 20070707
  Serious: Yes (Hospitalization, Disabling)
  Sender: FDA-Public Use
  Company Number: 2007RR-05597

PATIENT
  Age: 71 Year
  Sex: Female

DRUGS (6)
  1. SIMVASTATIN [Suspect]
     Indication: CARDIOVASCULAR EVENT PROPHYLAXIS
     Dosage: 80 MG, QD, ORAL
     Route: 048
     Dates: start: 20061101, end: 20070115
  2. AMLODIPINE MALEATE (AMLODIPINE) [Concomitant]
  3. ASPIRIN [Concomitant]
  4. ATENOLOL [Concomitant]
  5. NOVOMIX [Concomitant]
  6. RAMIPRIL [Concomitant]

REACTIONS (4)
  - ABASIA [None]
  - ASTHENIA [None]
  - CHROMATURIA [None]
  - RHABDOMYOLYSIS [None]
